FAERS Safety Report 15824585 (Version 1)
Quarter: 2019Q1

REPORT INFORMATION
  Report Type: Report from Study
  Country: US (occurrence: US)
  Receive Date: 20190115
  Receipt Date: 20190115
  Transmission Date: 20190417
  Serious: Yes (Other)
  Sender: FDA-Public Use
  Company Number: PHEH2019US001285

PATIENT
  Sex: Female
  Weight: 28.58 kg

DRUGS (1)
  1. ILARIS [Suspect]
     Active Substance: CANAKINUMAB
     Indication: JUVENILE IDIOPATHIC ARTHRITIS
     Dosage: 112 MG, QMO
     Route: 058

REACTIONS (2)
  - Pyrexia [Unknown]
  - Juvenile idiopathic arthritis [Unknown]
